FAERS Safety Report 18138691 (Version 2)
Quarter: 2020Q3

REPORT INFORMATION
  Report Type: Report from Study
  Country: ES (occurrence: ES)
  Receive Date: 20200812
  Receipt Date: 20200824
  Transmission Date: 20201103
  Serious: Yes (Other)
  Sender: FDA-Public Use
  Company Number: ES-ROCHE-2654645

PATIENT
  Age: 69 Year
  Sex: Male
  Weight: 73 kg

DRUGS (8)
  1. RITUXIMAB. [Suspect]
     Active Substance: RITUXIMAB
     Indication: MANTLE CELL LYMPHOMA
     Dosage: DATE OF DRUG ADMINISTERED PRIOR TO SAE: 07/JUL/2020?EVERY 8 WEEKS FOR 24 MONTHS
     Route: 058
     Dates: start: 20190109
  2. WARFARIN [Concomitant]
     Active Substance: WARFARIN
     Dates: start: 20200613
  3. OMEPRAZOLE. [Concomitant]
     Active Substance: OMEPRAZOLE
     Dates: start: 20200613
  4. ACICLOVIR [Concomitant]
     Active Substance: ACYCLOVIR
     Dates: start: 20200613
  5. LENALIDOMIDE [Suspect]
     Active Substance: LENALIDOMIDE
     Indication: MANTLE CELL LYMPHOMA
     Dosage: DATE OF DRUG ADMINISTERED PRIOR TO SAE: 19/JUL/2020, MOST RECENT DOSE 5 MG?3 WEEKS EVERY 4 WEEKS FOR
     Route: 065
     Dates: start: 20190110
  6. ONDANSETRON [Concomitant]
     Active Substance: ONDANSETRON
     Dates: start: 20180613
  7. SEPTRIN FORTE [Concomitant]
     Active Substance: SULFAMETHOXAZOLE\TRIMETHOPRIM
     Dates: start: 20200613
  8. ATRAX [Concomitant]
     Dates: start: 20200613

REACTIONS (1)
  - Squamous cell carcinoma [Recovered/Resolved]

NARRATIVE: CASE EVENT DATE: 20200720
